FAERS Safety Report 15672930 (Version 1)
Quarter: 2018Q4

REPORT INFORMATION
  Report Type: Spontaneous
  Country: US (occurrence: US)
  Receive Date: 20181129
  Receipt Date: 20181129
  Transmission Date: 20190205
  Serious: No
  Sender: FDA-Public Use
  Company Number: US-ROCHE-2158331

PATIENT
  Sex: Female

DRUGS (3)
  1. OCREVUS [Suspect]
     Active Substance: OCRELIZUMAB
     Route: 065
     Dates: start: 201801
  2. OCREVUS [Suspect]
     Active Substance: OCRELIZUMAB
     Indication: RELAPSING MULTIPLE SCLEROSIS
     Dosage: ^DOSE SPLIT INTO TWO^
     Route: 065
     Dates: start: 201706
  3. OCREVUS [Suspect]
     Active Substance: OCRELIZUMAB
     Dosage: ^DOSE SPLIT INTO TWO^
     Route: 065
     Dates: start: 201707

REACTIONS (1)
  - Melanocytic naevus [Not Recovered/Not Resolved]
